FAERS Safety Report 8478881-4 (Version None)
Quarter: 2012Q2

REPORT INFORMATION
  Report Type: 
  Country: None (occurrence: None)
  Receive Date: 20120629
  Receipt Date: 20120625
  Transmission Date: 20120825
  Serious: Yes (Other)
  Sender: FDA-Public Use
  Company Number: US-PFIZER INC-2012153142

PATIENT
  Sex: Female
  Weight: 59 kg

DRUGS (2)
  1. LYRICA [Suspect]
     Dosage: 50 MG, 3X/DAY
     Route: 048
     Dates: start: 20120614, end: 20120616
  2. NORPACE [Concomitant]
     Dosage: UNK

REACTIONS (5)
  - ORAL MUCOSAL BLISTERING [None]
  - SWOLLEN TONGUE [None]
  - RASH [None]
  - SWELLING FACE [None]
  - SKIN IRRITATION [None]
